FAERS Safety Report 9665074 (Version 2)
Quarter: 2014Q1

REPORT INFORMATION
  Report Type: Spontaneous
  Country: CA (occurrence: CA)
  Receive Date: 20131103
  Receipt Date: 20140121
  Transmission Date: 20141002
  Serious: Yes (Hospitalization, Disabling, Other)
  Sender: FDA-Public Use
  Company Number: CA-ELI_LILLY_AND_COMPANY-CA201310007867

PATIENT
  Age: 51 Year
  Sex: Female

DRUGS (7)
  1. HUMALOG LISPRO [Suspect]
     Indication: TYPE 2 DIABETES MELLITUS
     Dosage: 2 DF, UNKNOWN
     Route: 058
     Dates: start: 20130215, end: 20130216
  2. HUMULIN MIX [Concomitant]
     Indication: PRODUCT USED FOR UNKNOWN INDICATION
     Dosage: UNK UNK, BID
     Route: 058
  3. KETOROLAC [Concomitant]
     Dosage: 10 MG, QD
  4. CLOPIDOGREL MYLAN [Concomitant]
     Dosage: 75 MG, QD
  5. ROSUVASTATIN [Concomitant]
     Dosage: 10 MG, QD
  6. VERAPAMIL HCL [Concomitant]
     Dosage: 80 MG, QD
  7. VITAMIN D                          /00107901/ [Concomitant]
     Dosage: 100 MG, QD

REACTIONS (12)
  - Aphasia [Recovering/Resolving]
  - Convulsion [Recovering/Resolving]
  - Hypoaesthesia [Recovering/Resolving]
  - Hypoaesthesia oral [Recovering/Resolving]
  - Muscle spasms [Recovering/Resolving]
  - Muscular weakness [Recovering/Resolving]
  - Nausea [Recovering/Resolving]
  - Pallor [Recovering/Resolving]
  - Paraesthesia [Recovering/Resolving]
  - Paraesthesia oral [Recovering/Resolving]
  - VIIth nerve paralysis [Recovering/Resolving]
  - Blood potassium decreased [Unknown]
